FAERS Safety Report 19487757 (Version 2)
Quarter: 2021Q4

REPORT INFORMATION
  Report Type: Spontaneous
  Country: GB (occurrence: GB)
  Receive Date: 20210702
  Receipt Date: 20211029
  Transmission Date: 20220303
  Serious: Yes (Death, Other)
  Sender: FDA-Public Use
  Company Number: GB-002147023-NVSC2021GB145678

PATIENT

DRUGS (2)
  1. RUXOLITINIB [Suspect]
     Active Substance: RUXOLITINIB
     Indication: Product used for unknown indication
     Dosage: 5 MG, BID
     Route: 065
     Dates: start: 201901
  2. RITUXIMAB [Suspect]
     Active Substance: RITUXIMAB
     Indication: Product used for unknown indication
     Dosage: UNK
     Route: 065
     Dates: start: 201811

REACTIONS (11)
  - Liver function test abnormal [Unknown]
  - Blast cell count increased [Unknown]
  - Lower respiratory tract infection [Unknown]
  - Death [Fatal]
  - Haemoglobin abnormal [Unknown]
  - Pruritus [Unknown]
  - Mouth ulceration [Unknown]
  - Herpes zoster [Unknown]
  - Splenomegaly [Unknown]
  - Urinary tract infection [Unknown]
  - Weight decreased [Unknown]

NARRATIVE: CASE EVENT DATE: 20181101
